FAERS Safety Report 23574523 (Version 1)
Quarter: 2024Q1

REPORT INFORMATION
  Report Type: Spontaneous
  Country: ZA (occurrence: ZA)
  Receive Date: 20240228
  Receipt Date: 20240228
  Transmission Date: 20240409
  Serious: Yes (Other)
  Sender: FDA-Public Use
  Company Number: ZA-SA-2020SA377990

PATIENT
  Sex: Female
  Weight: 114 kg

DRUGS (4)
  1. CHLOROQUINE [Suspect]
     Active Substance: CHLOROQUINE
     Dosage: 150 MG, QD
     Dates: start: 20180224, end: 20180920
  2. ARAVA [Suspect]
     Active Substance: LEFLUNOMIDE
     Dosage: 200 MG, QD
     Route: 065
     Dates: start: 20200228, end: 20200601
  3. METHOTREXATE [Concomitant]
     Active Substance: METHOTREXATE
     Dosage: 20 MG, QW
     Dates: start: 20180409
  4. SULFASALAZINE [Concomitant]
     Active Substance: SULFASALAZINE
     Dosage: UNK, 1G 2X/DAY
     Dates: start: 20180224

REACTIONS (6)
  - Diverticulitis [Unknown]
  - Condition aggravated [Unknown]
  - Weight increased [Unknown]
  - C-reactive protein increased [Unknown]
  - Vision blurred [Unknown]
  - Drug ineffective [Unknown]
